FAERS Safety Report 5811699-7 (Version None)
Quarter: 2008Q3

REPORT INFORMATION
  Report Type: 
  Country: None (occurrence: None)
  Receive Date: 20080716
  Receipt Date: 20080708
  Transmission Date: 20090109
  Serious: Yes (Hospitalization)
  Sender: FDA-Public Use
  Company Number: A0733519A

PATIENT
  Age: 54 Year
  Sex: Female
  Weight: 56.4 kg

DRUGS (4)
  1. LAPATINIB [Suspect]
     Dosage: 1500MG PER DAY
     Route: 048
     Dates: start: 20080311
  2. CAPECITABINE [Suspect]
     Dosage: 3000MG PER DAY
     Dates: start: 20080311
  3. OMEPRAZOLE [Concomitant]
     Indication: NAUSEA
     Dosage: 1UNIT PER DAY
     Route: 048
     Dates: start: 20080313, end: 20080512
  4. ZOMETA [Concomitant]
     Dosage: 4UNIT PER DAY
     Route: 042
     Dates: start: 20080615

REACTIONS (3)
  - ABDOMINAL PAIN [None]
  - APPENDICITIS [None]
  - PYREXIA [None]
